FAERS Safety Report 6649337-6 (Version None)
Quarter: 2010Q1

REPORT INFORMATION
  Report Type: 
  Country: None (occurrence: None)
  Receive Date: 20100324
  Receipt Date: 20100111
  Transmission Date: 20100710
  Serious: Yes (Hospitalization)
  Sender: FDA-Public Use
  Company Number: GB-TEVA-228497ISR

PATIENT
  Sex: Male

DRUGS (11)
  1. PREDNISOLONE [Suspect]
     Indication: PROSTATE CANCER
     Route: 048
     Dates: start: 20090127, end: 20090504
  2. PREDNISOLONE [Suspect]
     Route: 048
     Dates: start: 20090505
  3. ABIRATERONE ACETATE OR PLACEBO [Suspect]
     Indication: PROSTATE CANCER
     Route: 048
     Dates: start: 20090127, end: 20090508
  4. DEXAMETHASONE [Concomitant]
     Indication: DISEASE PROGRESSION
  5. DICLOFENAC SODIUM [Concomitant]
     Indication: BACK PAIN
  6. PANADEINE CO [Concomitant]
     Indication: CANCER PAIN
     Dates: start: 20090421
  7. PANADEINE CO [Concomitant]
     Indication: BONE PAIN
     Dates: start: 20090401
  8. OMEPRAZOLE [Concomitant]
     Indication: PROPHYLAXIS
     Dates: start: 20090421
  9. FERROUS SULFATE TAB [Concomitant]
     Indication: ANAEMIA
     Dates: start: 20081201
  10. AMLODIPINE [Concomitant]
     Indication: HYPERTENSION
     Route: 048
     Dates: start: 20081201
  11. LEUPRORELIN ACETATE [Concomitant]
     Indication: HORMONE THERAPY
     Dates: start: 20090127

REACTIONS (1)
  - MELAENA [None]
